FAERS Safety Report 13869062 (Version 2)
Quarter: 2017Q3

REPORT INFORMATION
  Report Type: Spontaneous
  Country: US (occurrence: US)
  Receive Date: 20170815
  Receipt Date: 20170908
  Transmission Date: 20171127
  Serious: Yes (Other)
  Sender: FDA-Public Use
  Company Number: US-TEVA-796005USA

PATIENT
  Sex: Male

DRUGS (1)
  1. FENTANYL TRANSDERMAL SYSTEM [Suspect]
     Active Substance: FENTANYL
     Route: 062

REACTIONS (6)
  - Product adhesion issue [Unknown]
  - Cardiac infection [Unknown]
  - Pain [Unknown]
  - Product quality issue [Unknown]
  - Hypertension [Unknown]
  - Wrong technique in product usage process [Unknown]
